FAERS Safety Report 6593777-0 (Version None)
Quarter: 2010Q1

REPORT INFORMATION
  Report Type: 
  Country: None (occurrence: None)
  Receive Date: 20100212
  Receipt Date: 20100125
  Transmission Date: 20100710
  Serious: Yes (Other)
  Sender: FDA-Public Use
  Company Number: 2010-0211

PATIENT
  Age: 44 Year
  Sex: Male

DRUGS (3)
  1. APO-GO AMPOULES (APO-GO) (APOMORPHINE HYDROCHLORIDE) (APOMORPHINE HYDR [Suspect]
     Indication: PARKINSON'S DISEASE
     Dosage: 1.5 MG (1.5 MG, NOT REPORTED)3 MG, NOT REPORTED, SUBCUTANEOUS
     Route: 058
     Dates: start: 20091015, end: 20091015
  2. REQUIP XL (ROPINIROLE) [Concomitant]
  3. STALEVO (STALEVO) [Concomitant]

REACTIONS (4)
  - DYSSTASIA [None]
  - HYPOTENSION [None]
  - LOSS OF CONSCIOUSNESS [None]
  - MALAISE [None]
